FAERS Safety Report 20607202 (Version 5)
Quarter: 2022Q2

REPORT INFORMATION
  Report Type: Report from Study
  Country: NO (occurrence: None)
  Receive Date: 20220317
  Receipt Date: 20220412
  Transmission Date: 20220721
  Serious: Yes (Death, Other)
  Sender: FDA-Public Use
  Company Number: NO-ROCHE-3048669

PATIENT
  Age: 75 Year
  Sex: Female
  Weight: 61.4 kg

DRUGS (6)
  1. ATEZOLIZUMAB [Suspect]
     Active Substance: ATEZOLIZUMAB
     Indication: Ovarian cancer recurrent
     Dosage: DATE OF LAST DOSE PRIOR TO SAE WAS 24/FEB/2022
     Route: 041
     Dates: start: 20210617, end: 20220310
  2. BEVACIZUMAB [Suspect]
     Active Substance: BEVACIZUMAB
     Indication: Ovarian cancer recurrent
     Dosage: DATE OF LAST DOSE PRIOR TO SAE WAS 24/FEB/2022 AND 10 MG/KG
     Route: 042
     Dates: start: 20210617, end: 20220304
  3. PACLITAXEL [Suspect]
     Active Substance: PACLITAXEL
     Indication: Ovarian cancer recurrent
     Dosage: DATE OF LAST DOSE PRIOR TO SAE WAS 16/DEC/2021
     Route: 042
     Dates: start: 20210617
  4. ACETAMINOPHEN [Concomitant]
     Active Substance: ACETAMINOPHEN
     Indication: Cerebral haemorrhage
     Route: 048
     Dates: start: 20220310
  5. DEXAMETHASONE [Concomitant]
     Active Substance: DEXAMETHASONE
     Indication: Cerebral haemorrhage
     Route: 048
     Dates: start: 20220309
  6. DEXAMETHASONE [Concomitant]
     Active Substance: DEXAMETHASONE
     Route: 048
     Dates: start: 20220310

REACTIONS (2)
  - Hepatitis [Fatal]
  - Drug-induced liver injury [Unknown]

NARRATIVE: CASE EVENT DATE: 20220310
